FAERS Safety Report 7590842-6 (Version None)
Quarter: 2011Q3

REPORT INFORMATION
  Report Type: 
  Country: None (occurrence: None)
  Receive Date: 20110705
  Receipt Date: 20110622
  Transmission Date: 20111222
  Serious: Yes (Other)
  Sender: FDA-Public Use
  Company Number: PHHY2011MX56042

PATIENT
  Age: 67 Year
  Sex: Female

DRUGS (8)
  1. ESPIGELIA [Concomitant]
  2. CLONAZEPAM [Concomitant]
  3. DIOVAN HCT [Suspect]
     Dosage: 160 MG VALS AND 25 MG HYDR DAILY
     Route: 048
     Dates: start: 20110301
  4. DIOVAN HCT [Suspect]
     Indication: HYPERTENSION
     Dosage: 2 DF, 160/12.5 MG DAILY
     Route: 048
     Dates: start: 20110201
  5. COLCHICUM [Concomitant]
  6. ATENOLOL [Concomitant]
  7. PULSATILLA [Concomitant]
  8. ACONITUM [Concomitant]

REACTIONS (7)
  - FATIGUE [None]
  - PAIN IN EXTREMITY [None]
  - STRESS [None]
  - ARRHYTHMIA [None]
  - DIZZINESS [None]
  - DEPRESSION [None]
  - ANXIETY [None]
